FAERS Safety Report 22604957 (Version 2)
Quarter: 2023Q2

REPORT INFORMATION
  Report Type: Report from Study
  Country: US (occurrence: US)
  Receive Date: 20230615
  Receipt Date: 20230626
  Transmission Date: 20230722
  Serious: Yes (Death, Other)
  Sender: FDA-Public Use
  Company Number: US-TEVA-2023-US-2895927

PATIENT
  Age: 29 Week

DRUGS (4)
  1. SOTALOL [Suspect]
     Active Substance: SOTALOL
     Indication: Atrial flutter
     Route: 064
  2. SOTALOL [Suspect]
     Active Substance: SOTALOL
     Indication: Hydrops foetalis
  3. DIGOXIN [Suspect]
     Active Substance: DIGOXIN
     Indication: Atrial flutter
     Route: 064
  4. DIGOXIN [Suspect]
     Active Substance: DIGOXIN
     Indication: Hydrops foetalis

REACTIONS (2)
  - Drug ineffective [Fatal]
  - Foetal exposure during pregnancy [Unknown]
